FAERS Safety Report 12204783 (Version 3)
Quarter: 2016Q2

REPORT INFORMATION
  Report Type: Spontaneous
  Country: US (occurrence: US)
  Receive Date: 20160323
  Receipt Date: 20160622
  Transmission Date: 20160815
  Serious: Yes (Other)
  Sender: FDA-Public Use
  Company Number: US-ACTAVIS-2016-04032

PATIENT
  Sex: Male

DRUGS (1)
  1. CLOZAPINE (ACTAVIS LABORATORIES FL, INC.) [Suspect]
     Active Substance: CLOZAPINE
     Indication: PRODUCT USED FOR UNKNOWN INDICATION
     Dosage: 3 DF, AT BEDTIME
     Route: 048
     Dates: start: 20160109

REACTIONS (1)
  - Neutropenia [Recovering/Resolving]
